FAERS Safety Report 4947989-X (Version None)
Quarter: 2006Q1

REPORT INFORMATION
  Report Type: 
  Country: None (occurrence: None)
  Receive Date: 20060320
  Receipt Date: 20050930
  Transmission Date: 20060701
  Serious: Yes (Death, Other)
  Sender: FDA-Public Use
  Company Number: US-MERCK-0510USA01284

PATIENT
  Age: 57 Year
  Sex: Male

DRUGS (1)
  1. VIOXX [Suspect]
     Route: 048
     Dates: start: 20000101, end: 20030301

REACTIONS (10)
  - ANGINA PECTORIS [None]
  - ARRHYTHMIA [None]
  - CARDIAC DISORDER [None]
  - CEREBROVASCULAR ACCIDENT [None]
  - DEATH [None]
  - INJURY [None]
  - MYOCARDIAL INFARCTION [None]
  - ORGAN FAILURE [None]
  - PULMONARY EMBOLISM [None]
  - THROMBOSIS [None]
